FAERS Safety Report 21041237 (Version 1)
Quarter: 2022Q3

REPORT INFORMATION
  Report Type: Report from Study
  Country: US (occurrence: US)
  Receive Date: 20220705
  Receipt Date: 20220705
  Transmission Date: 20221026
  Serious: Yes (Hospitalization, Other)
  Sender: FDA-Public Use
  Company Number: US-NOVARTISPH-NVSC2021US289859

PATIENT
  Age: 59 Year
  Sex: Male
  Weight: 77 kg

DRUGS (13)
  1. COSENTYX [Suspect]
     Active Substance: SECUKINUMAB
     Indication: Psoriasis
     Dosage: 300 MG, QMO
     Route: 058
     Dates: start: 20190903, end: 20211110
  2. COSENTYX [Suspect]
     Active Substance: SECUKINUMAB
     Dosage: 300 MG, QMO
     Route: 065
     Dates: start: 20191024, end: 20201201
  3. COSENTYX [Suspect]
     Active Substance: SECUKINUMAB
     Dosage: 300 MG, QMO
     Route: 065
     Dates: start: 20210210
  4. COSENTYX [Suspect]
     Active Substance: SECUKINUMAB
     Dosage: 300 MG, QMO
     Route: 065
     Dates: start: 20211013, end: 20211101
  5. COSENTYX [Suspect]
     Active Substance: SECUKINUMAB
     Dosage: 300 MG, QMO
     Route: 065
     Dates: start: 20220115
  6. MELOXICAM [Concomitant]
     Active Substance: MELOXICAM
     Indication: Psoriatic arthropathy
     Dosage: 7.5 MG, QD
     Route: 065
     Dates: start: 20210609
  7. VENTOLIN [Concomitant]
     Active Substance: ALBUTEROL SULFATE
     Indication: Seasonal allergy
     Dosage: 90 UG, PRN
     Route: 065
     Dates: start: 20210701
  8. TRIAMCINOLONE ACETONIDE [Concomitant]
     Active Substance: TRIAMCINOLONE ACETONIDE
     Indication: Product used for unknown indication
     Dosage: UNK
     Route: 065
  9. FLONASE [Concomitant]
     Active Substance: FLUTICASONE PROPIONATE
     Indication: Product used for unknown indication
     Dosage: UNK
     Route: 065
  10. OMEPRAZOLE [Concomitant]
     Active Substance: OMEPRAZOLE
     Indication: Product used for unknown indication
     Dosage: UNK
     Route: 065
  11. SILDENAFIL [Concomitant]
     Active Substance: SILDENAFIL
     Indication: Product used for unknown indication
     Dosage: UNK
     Route: 065
  12. LOSARTAN AND HYDROCHLOROTHIAZIDE [Concomitant]
     Active Substance: HYDROCHLOROTHIAZIDE\LOSARTAN POTASSIUM
     Indication: Hypertension
     Dosage: 50 MG, QD
     Route: 065
     Dates: start: 20211001
  13. ROSUVASTATIN [Concomitant]
     Active Substance: ROSUVASTATIN
     Indication: Product used for unknown indication
     Route: 065

REACTIONS (17)
  - COVID-19 pneumonia [Recovered/Resolved]
  - Acute respiratory failure [Recovered/Resolved]
  - Diabetes mellitus [Recovered/Resolved]
  - Nephrolithiasis [Unknown]
  - Benign prostatic hyperplasia [Recovered/Resolved]
  - COVID-19 [Recovered/Resolved]
  - Nasal congestion [Recovered/Resolved with Sequelae]
  - Oropharyngeal pain [Recovered/Resolved with Sequelae]
  - Malaise [Recovered/Resolved with Sequelae]
  - Cough [Recovered/Resolved with Sequelae]
  - Pyrexia [Recovered/Resolved with Sequelae]
  - Myalgia [Recovered/Resolved with Sequelae]
  - Rhinorrhoea [Recovered/Resolved with Sequelae]
  - Anosmia [Recovered/Resolved with Sequelae]
  - Ageusia [Recovered/Resolved with Sequelae]
  - Rash [Recovering/Resolving]
  - Urticaria [Recovered/Resolved with Sequelae]

NARRATIVE: CASE EVENT DATE: 20210901
